FAERS Safety Report 21050771 (Version 2)
Quarter: 2022Q3

REPORT INFORMATION
  Report Type: Spontaneous
  Country: US (occurrence: US)
  Receive Date: 20220707
  Receipt Date: 20220709
  Transmission Date: 20221026
  Serious: Yes (Hospitalization, Other)
  Sender: FDA-Public Use
  Company Number: US-UNITED THERAPEUTICS-UNT-2022-013398

PATIENT
  Age: 43 Year
  Sex: Male

DRUGS (4)
  1. REMODULIN [Suspect]
     Active Substance: TREPROSTINIL
     Indication: Pulmonary arterial hypertension
     Dosage: UNK, CONTINUING
     Route: 058
     Dates: start: 20210925
  2. REMODULIN [Suspect]
     Active Substance: TREPROSTINIL
     Dosage: 0.0799 ?G/KG, CONTINUING
     Route: 058
  3. REMODULIN [Suspect]
     Active Substance: TREPROSTINIL
     Dosage: 0.0995 ?G/KG, CONTINUING
     Route: 058
  4. ADEMPAS [Suspect]
     Active Substance: RIOCIGUAT
     Indication: Product used for unknown indication
     Dosage: 1.5 MG, UNK
     Route: 065
     Dates: start: 20220606, end: 2022

REACTIONS (7)
  - Oxygen saturation decreased [Unknown]
  - Cardiac failure [Unknown]
  - Oedema [Unknown]
  - Blood sodium decreased [Unknown]
  - Fluid retention [Not Recovered/Not Resolved]
  - Feeling abnormal [Unknown]
  - Nausea [Unknown]

NARRATIVE: CASE EVENT DATE: 20220601
